FAERS Safety Report 8771313 (Version 1)
Quarter: 2012Q4

REPORT INFORMATION
  Report Type: 
  Country: AU (occurrence: AU)
  Receive Date: 20120906
  Receipt Date: 20120906
  Transmission Date: 20130627
  Serious: Yes (Other)
  Sender: FDA-Public Use
  Company Number: PHHY2012AU077028

PATIENT
  Sex: Male

DRUGS (1)
  1. LAMISIL [Suspect]
     Dosage: UNK
     Dates: start: 2004, end: 2005

REACTIONS (2)
  - Oesophagitis [Not Recovered/Not Resolved]
  - Pancreatitis [Not Recovered/Not Resolved]
